FAERS Safety Report 19570509 (Version 2)
Quarter: 2021Q3

REPORT INFORMATION
  Report Type: Spontaneous
  Country: US (occurrence: US)
  Receive Date: 20210715
  Receipt Date: 20210726
  Transmission Date: 20211014
  Serious: Yes (Hospitalization)
  Sender: FDA-Public Use
  Company Number: US-TEVA-2021-US-1931362

PATIENT
  Age: 8 Year
  Sex: Male

DRUGS (7)
  1. OMALIZUMAB. [Concomitant]
     Active Substance: OMALIZUMAB
     Indication: ALLERGIC BRONCHOPULMONARY MYCOSIS
  2. OMALIZUMAB. [Concomitant]
     Active Substance: OMALIZUMAB
     Indication: BRONCHOPULMONARY ASPERGILLOSIS ALLERGIC
     Route: 065
  3. POSACONAZOLE [Concomitant]
     Active Substance: POSACONAZOLE
     Indication: BRONCHOPULMONARY ASPERGILLOSIS ALLERGIC
     Route: 065
  4. POSACONAZOLE [Concomitant]
     Active Substance: POSACONAZOLE
     Indication: ALLERGIC BRONCHOPULMONARY MYCOSIS
  5. PREDNISONE. [Suspect]
     Active Substance: PREDNISONE
     Indication: BRONCHOPULMONARY ASPERGILLOSIS ALLERGIC
     Route: 065
  6. PREDNISONE. [Suspect]
     Active Substance: PREDNISONE
     Indication: ALLERGIC BRONCHOPULMONARY MYCOSIS
     Dosage: RECEIVED ALONG WITH POSACONAZOLE
     Route: 065
  7. VORICONAZOLE. [Concomitant]
     Active Substance: VORICONAZOLE
     Indication: BRONCHOPULMONARY ASPERGILLOSIS
     Route: 065

REACTIONS (3)
  - Actinomycosis [Recovering/Resolving]
  - Pneumonia [Recovering/Resolving]
  - Infectious pleural effusion [Recovering/Resolving]
